FAERS Safety Report 10650284 (Version 4)
Quarter: 2015Q2

REPORT INFORMATION
  Report Type: Spontaneous
  Country: US (occurrence: US)
  Receive Date: 20141212
  Receipt Date: 20150525
  Transmission Date: 20150821
  Serious: No
  Sender: FDA-Public Use
  Company Number: US-JNJFOC-20141204065

PATIENT
  Age: 76 Year
  Sex: Female
  Weight: 64.86 kg

DRUGS (7)
  1. SYNTHROID [Concomitant]
     Active Substance: LEVOTHYROXINE SODIUM
     Indication: THYROID DISORDER
     Dosage: FOR 5 YEARS
     Route: 065
  2. VITAMIN [Concomitant]
     Active Substance: VITAMINS
     Dosage: 5 YEARS
     Route: 065
  3. IMODIUM MULTI-SYMPTOM RELIEF [Suspect]
     Active Substance: DIMETHICONE\LOPERAMIDE HYDROCHLORIDE
     Indication: DIARRHOEA
     Dosage: 1 CAPLET ONCE IN ANY 24 HOUR PERIOD
     Route: 048
     Dates: end: 20141201
  4. IMODIUM MULTI-SYMPTOM RELIEF [Suspect]
     Active Substance: DIMETHICONE\LOPERAMIDE HYDROCHLORIDE
     Indication: DIARRHOEA
     Route: 048
     Dates: start: 20141216
  5. AMITRIPTYLINE [Concomitant]
     Active Substance: AMITRIPTYLINE
     Indication: HYPERSOMNIA
     Dosage: 5 YEARS
     Route: 065
  6. IMODIUM MULTI-SYMPTOM RELIEF [Suspect]
     Active Substance: DIMETHICONE\LOPERAMIDE HYDROCHLORIDE
     Indication: DIARRHOEA
     Route: 048
     Dates: end: 20141212
  7. FISH OIL [Concomitant]
     Active Substance: FISH OIL
     Dosage: 5 YEARS
     Route: 065

REACTIONS (8)
  - Dysphagia [Unknown]
  - Wrong technique in drug usage process [Unknown]
  - Foreign body [Recovered/Resolved]
  - Incorrect dose administered [Unknown]
  - Dyspnoea [Recovered/Resolved]
  - Inappropriate schedule of drug administration [Unknown]
  - Oropharyngeal pain [Recovered/Resolved]
  - Drug ineffective [Unknown]

NARRATIVE: CASE EVENT DATE: 20141212
